FAERS Safety Report 9262400 (Version 1)
Quarter: 2013Q2

REPORT INFORMATION
  Report Type: Spontaneous
  Country: GB (occurrence: None)
  Receive Date: 20130425
  Receipt Date: 20130425
  Transmission Date: 20140414
  Serious: Yes (Life-Threatening, Hospitalization, Disabling, Other)
  Sender: FDA-Public Use
  Company Number: GER/UKI/13/0029207

PATIENT
  Age: 25 Year
  Sex: Female
  Weight: 52.61 kg

DRUGS (6)
  1. QUETIAPINE [Suspect]
     Indication: SCHIZOPHRENIA
     Route: 048
  2. CLARITHROMYCIN (CLARITHROMYCIN (CLARITHROMYCIN) [Concomitant]
  3. CODEINE (CODEINE) [Concomitant]
  4. MIRTAZAPINE (MIRTZAPINE) [Concomitant]
  5. PEVARYL (ECONAZOLE) [Concomitant]
  6. PROCYCLIDINE (PROCYCLIDINE) [Concomitant]

REACTIONS (5)
  - Pain in extremity [None]
  - Renal failure acute [None]
  - Muscle necrosis [None]
  - Myositis [None]
  - Rhabdomyolysis [None]
